FAERS Safety Report 5267251-8 (Version None)
Quarter: 2007Q1

REPORT INFORMATION
  Report Type: 
  Country: None (occurrence: None)
  Receive Date: 20070313
  Receipt Date: 20070301
  Transmission Date: 20070707
  Serious: Yes (Other)
  Sender: FDA-Public Use
  Company Number: 2007309640

PATIENT
  Sex: Female

DRUGS (2)
  1. BENADRYL [Suspect]
     Indication: URTICARIA
     Dosage: 1 TAB TWICE A DAY; THEN 1/2 TAB PRN, ORAL
     Route: 048
     Dates: start: 20070201
  2. BISOPROLOL FUMARATE [Concomitant]

REACTIONS (2)
  - DEHYDRATION [None]
  - PHARYNGEAL OEDEMA [None]
